FAERS Safety Report 9206479 (Version 2)
Quarter: 2013Q2

REPORT INFORMATION
  Report Type: Spontaneous
  Country: FR (occurrence: FR)
  Receive Date: 20130403
  Receipt Date: 20130423
  Transmission Date: 20140414
  Serious: Yes (Hospitalization)
  Sender: FDA-Public Use
  Company Number: FR-PFIZER INC-2013104291

PATIENT
  Age: 84 Year
  Sex: Male

DRUGS (9)
  1. ORELOX [Suspect]
     Dosage: UNK
     Route: 048
     Dates: start: 20130124, end: 20130125
  2. INEXIUM [Concomitant]
     Dosage: 40 MG DAILY
     Route: 048
  3. APAROXAL [Concomitant]
     Dosage: UNK
  4. DAFALGAN [Concomitant]
     Dosage: UNK
  5. KARDEGIC [Concomitant]
     Dosage: UNK
  6. CORDARONE [Concomitant]
     Dosage: UNK
  7. ZANIDIP [Concomitant]
     Dosage: UNK
  8. ECAZIDE [Concomitant]
     Dosage: UNK
  9. DUPHALAC [Concomitant]
     Dosage: UNK

REACTIONS (4)
  - Pancreatitis acute [Recovered/Resolved]
  - Abdominal pain upper [Recovered/Resolved]
  - Constipation [Recovered/Resolved]
  - Lipase increased [Recovered/Resolved]
